FAERS Safety Report 6944638-6 (Version None)
Quarter: 2010Q3

REPORT INFORMATION
  Report Type: 
  Country: None (occurrence: None)
  Receive Date: 20100827
  Receipt Date: 20100813
  Transmission Date: 20110219
  Serious: Yes (Hospitalization)
  Sender: FDA-Public Use
  Company Number: ES-BAYER-201036904GPV

PATIENT
  Age: 60 Year
  Sex: Male
  Weight: 55 kg

DRUGS (18)
  1. ZEVALIN [Suspect]
     Indication: B-CELL LYMPHOMA
     Route: 042
     Dates: start: 20100416, end: 20100416
  2. YTRACIS [Suspect]
     Indication: B-CELL LYMPHOMA
  3. FLUDARABINE [Suspect]
     Indication: B-CELL LYMPHOMA
  4. RITUXIMAB [Suspect]
     Indication: B-CELL LYMPHOMA
     Route: 042
     Dates: start: 20100409, end: 20100409
  5. RITUXIMAB [Suspect]
     Route: 042
     Dates: start: 20100416, end: 20100416
  6. MELFALAN [Suspect]
     Indication: B-CELL LYMPHOMA
  7. CICLOSPORIN 50 MG [Concomitant]
     Indication: PROPHYLAXIS AGAINST GRAFT VERSUS HOST DISEASE
     Dosage: TOTAL DAILY DOSE: 100 MG
     Route: 048
     Dates: start: 20100423
  8. POSACONAZOLE [Concomitant]
     Indication: ANTIFUNGAL PROPHYLAXIS
     Dosage: TOTAL DAILY DOSE: 600 MG
     Route: 048
     Dates: start: 20100501
  9. VALGANCICLOVIR [Concomitant]
     Indication: ANTIVIRAL PROPHYLAXIS
     Dosage: AS USED: 900 MG
     Route: 048
     Dates: start: 20100625, end: 20100714
  10. DIGOXIN [Concomitant]
     Indication: CARDIAC DISORDER
     Route: 048
  11. ACOVIL [Concomitant]
     Indication: CARDIAC DISORDER
     Dosage: TOTAL DAILY DOSE: 2.5 MG
     Route: 048
  12. ASPIRIN [Concomitant]
     Indication: CARDIAC DISORDER
     Dosage: AS USED: 100 MG
     Route: 048
  13. SINTROM [Concomitant]
     Indication: CARDIAC DISORDER
     Route: 048
  14. ACFOL [Concomitant]
     Indication: VITAMIN SUPPLEMENTATION
     Dosage: AS USED: 5 MG
     Route: 048
     Dates: start: 20100705
  15. PANTOPRAZOLE SODIUM [Concomitant]
     Indication: PROPHYLAXIS
     Dosage: AS USED: 40 MG
     Route: 042
     Dates: start: 20100705, end: 20100727
  16. OMEPRAZOLE [Concomitant]
     Indication: PROPHYLAXIS
     Dosage: TOTAL DAILY DOSE: 20 MG
     Route: 048
     Dates: start: 20100708
  17. SEPTRIN FORTE [Concomitant]
     Indication: ANTIFUNGAL PROPHYLAXIS
     Route: 048
     Dates: start: 20100715
  18. ACYCLOVIR SODIUM [Concomitant]
     Indication: ANTIVIRAL PROPHYLAXIS
     Dosage: AS USED: 800 MG
     Route: 048
     Dates: start: 20100714

REACTIONS (1)
  - ACUTE GRAFT VERSUS HOST DISEASE IN INTESTINE [None]
